FAERS Safety Report 18436288 (Version 1)
Quarter: 2020Q4

REPORT INFORMATION
  Report Type: Spontaneous
  Country: US (occurrence: US)
  Receive Date: 20201028
  Receipt Date: 20201028
  Transmission Date: 20210114
  Serious: Yes (Hospitalization, Disabling)
  Sender: FDA-Public Use
  Company Number: US-FRESENIUS KABI-FK202011350

PATIENT
  Age: 71 Year
  Sex: Male

DRUGS (1)
  1. FOSPHENYTOIN INJECTION (MANUFACTURER UNKNOWN) [Suspect]
     Active Substance: FOSPHENYTOIN
     Indication: SEIZURE
     Dosage: SUPRATHERAPEUTIC DOSE
     Route: 065

REACTIONS (5)
  - Toxicity to various agents [Recovered/Resolved with Sequelae]
  - Respiratory failure [Recovered/Resolved]
  - Drug monitoring procedure not performed [Recovered/Resolved with Sequelae]
  - Overdose [Recovered/Resolved with Sequelae]
  - Encephalopathy [Recovered/Resolved with Sequelae]
